FAERS Safety Report 8434698-8 (Version None)
Quarter: 2012Q2

REPORT INFORMATION
  Report Type: 
  Country: None (occurrence: None)
  Receive Date: 20120614
  Receipt Date: 20120604
  Transmission Date: 20120825
  Serious: Yes (Hospitalization)
  Sender: FDA-Public Use
  Company Number: FR-VERTEX PHARMACEUTICALS INC.-000000000000000669

PATIENT
  Sex: Male
  Weight: 68 kg

DRUGS (15)
  1. TELAPREVIR [Suspect]
     Indication: HEPATITIS C
     Dosage: DOSAGE FORM: TABLET
     Dates: start: 20111130, end: 20120217
  2. XYZAL [Concomitant]
     Indication: PRURITUS
     Dates: start: 20120217
  3. COPEGUS [Concomitant]
     Dates: start: 20111130
  4. RABEPRAZOLE SODIUM [Concomitant]
     Indication: DYSPEPSIA
  5. COPEGUS [Concomitant]
     Indication: HEPATITIS C
     Dates: start: 20111130
  6. PROPRANOLOL [Concomitant]
     Indication: VARICES OESOPHAGEAL
     Dates: start: 20110101
  7. OTHER NUTRIENTS [Concomitant]
     Indication: DECREASED APPETITE
  8. ACETAMINOPHEN [Concomitant]
     Indication: INFLUENZA
     Dates: start: 20111130
  9. PAROXETINE [Concomitant]
     Indication: DEPRESSION
     Dates: start: 20030101
  10. PEGASYS [Concomitant]
     Dates: start: 20111130
  11. MELALEUCA VIRIDIFLORA OIL [Concomitant]
     Dates: start: 20120110
  12. LASIX [Concomitant]
     Indication: ASCITES
     Dates: start: 20120217
  13. PEGASYS [Concomitant]
     Indication: HEPATITIS C
     Dates: start: 20111130
  14. ALDACTONE [Concomitant]
     Indication: ASCITES
     Dates: start: 20120217
  15. PROPRANOLOL [Concomitant]
     Indication: HYPERTENSION

REACTIONS (2)
  - HEPATIC NEOPLASM MALIGNANT [None]
  - ASCITES [None]
